FAERS Safety Report 21504349 (Version 2)
Quarter: 2025Q2

REPORT INFORMATION
  Report Type: Spontaneous
  Country: US (occurrence: US)
  Receive Date: 20221025
  Receipt Date: 20250423
  Transmission Date: 20250716
  Serious: Yes (Death, Life-Threatening, Hospitalization, Disabling, Other)
  Sender: JOHNSON AND JOHNSON
  Company Number: US-JNJFOC-20221042393

PATIENT
  Age: 74 Year
  Sex: Male
  Weight: 72.2 kg

DRUGS (17)
  1. DARZALEX FASPRO [Suspect]
     Active Substance: DARATUMUMAB\HYALURONIDASE-FIHJ
     Indication: Plasma cell myeloma
     Route: 058
  2. ELRANATAMAB [Suspect]
     Active Substance: ELRANATAMAB
     Indication: Plasma cell myeloma
     Route: 058
     Dates: end: 20221003
  3. ATORVASTATIN [Concomitant]
     Active Substance: ATORVASTATIN
     Dates: start: 2018
  4. AMLODIPINE [Concomitant]
     Active Substance: AMLODIPINE BESYLATE
     Dates: start: 2018
  5. DIGOXIN [Concomitant]
     Active Substance: DIGOXIN
     Dates: start: 20190913
  6. FILGRASTIM [Concomitant]
     Active Substance: FILGRASTIM
     Dates: start: 20220808
  7. VALSARTAN [Concomitant]
     Active Substance: VALSARTAN
     Dates: start: 2018
  8. PREGABALIN [Concomitant]
     Active Substance: PREGABALIN
     Dates: start: 2022
  9. EMPAGLIFLOZIN [Concomitant]
     Active Substance: EMPAGLIFLOZIN
     Dates: start: 20220704
  10. TAMSULOSIN [Concomitant]
     Active Substance: TAMSULOSIN
  11. DABIGATRAN [Concomitant]
     Active Substance: DABIGATRAN
     Dates: start: 2018
  12. BISOPROLOL [Concomitant]
     Active Substance: BISOPROLOL
     Dates: start: 2018
  13. ACYCLOVIR [Concomitant]
     Active Substance: ACYCLOVIR
     Dates: start: 20220827
  14. ESOMEPRAZOLE [Concomitant]
     Active Substance: ESOMEPRAZOLE
     Dates: start: 20220831
  15. LORAZEPAM [Concomitant]
     Active Substance: LORAZEPAM
     Dates: start: 20220919
  16. MONTELUKAST [Concomitant]
     Active Substance: MONTELUKAST
     Dates: start: 20221010
  17. ACETAMINOPHEN [Concomitant]
     Active Substance: ACETAMINOPHEN
     Dates: start: 2022

REACTIONS (3)
  - Urosepsis [Fatal]
  - Atypical pneumonia [Not Recovered/Not Resolved]
  - Presyncope [Unknown]

NARRATIVE: CASE EVENT DATE: 20221010
